FAERS Safety Report 10233223 (Version 1)
Quarter: 2014Q2

REPORT INFORMATION
  Report Type: Spontaneous
  Country: US (occurrence: None)
  Receive Date: 20140506
  Receipt Date: 20140506
  Transmission Date: 20141212
  Serious: Yes (Hospitalization)
  Sender: FDA-Public Use
  Company Number: 1238137

PATIENT
  Age: 74 Year
  Sex: Male

DRUGS (2)
  1. BEVACIZUMAB [Suspect]
     Indication: NON-SMALL CELL LUNG CANCER
  2. DOCETAXEL (DOCETAXEL) [Concomitant]

REACTIONS (3)
  - Oesophagobronchial fistula [None]
  - Pneumonia [None]
  - Febrile neutropenia [None]
